FAERS Safety Report 15900308 (Version 2)
Quarter: 2019Q1

REPORT INFORMATION
  Report Type: Spontaneous
  Country: US (occurrence: US)
  Receive Date: 20190201
  Receipt Date: 20190315
  Transmission Date: 20190417
  Serious: No
  Sender: FDA-Public Use
  Company Number: US-TEVA-2019-US-996005

PATIENT
  Sex: Female

DRUGS (4)
  1. KELNOR 1/35 [Suspect]
     Active Substance: ETHINYL ESTRADIOL\ETHYNODIOL DIACETATE
     Indication: PARAESTHESIA
  2. ARMOUR THYROID [Concomitant]
     Active Substance: THYROID, PORCINE
     Route: 065
  3. KELNOR 1/35 [Suspect]
     Active Substance: ETHINYL ESTRADIOL\ETHYNODIOL DIACETATE
     Indication: PERIPHERAL SWELLING
     Dosage: 1 MG/35 MCG
     Route: 065
     Dates: start: 20190101, end: 20190128
  4. KELNOR 1/35 [Suspect]
     Active Substance: ETHINYL ESTRADIOL\ETHYNODIOL DIACETATE
     Indication: PERIPHERAL SWELLING
     Route: 065

REACTIONS (1)
  - Product use in unapproved indication [Unknown]
